FAERS Safety Report 8873712 (Version 1)
Quarter: 2012Q4

REPORT INFORMATION
  Report Type: 
  Country: FR (occurrence: FR)
  Receive Date: 20121026
  Receipt Date: 20121026
  Transmission Date: 20130627
  Serious: Yes (Hospitalization)
  Sender: FDA-Public Use
  Company Number: FR-ASTRAZENECA-2012SE80079

PATIENT
  Age: 552 Month
  Sex: Male

DRUGS (4)
  1. ENTOCORT [Suspect]
     Indication: CROHN^S DISEASE
     Route: 048
     Dates: end: 201108
  2. IMUREL [Suspect]
     Indication: CROHN^S DISEASE
     Route: 048
     Dates: end: 201108
  3. REMICADE [Suspect]
     Indication: CROHN^S DISEASE
     Route: 042
     Dates: start: 20110824, end: 20111005
  4. REMICADE [Suspect]
     Indication: CROHN^S DISEASE
     Route: 042
     Dates: start: 20120912, end: 20120920

REACTIONS (5)
  - Pulmonary tuberculosis [Recovered/Resolved]
  - Hepatic function abnormal [Unknown]
  - Cholestasis [Unknown]
  - Hepatosplenomegaly [Unknown]
  - General physical health deterioration [Unknown]
